FAERS Safety Report 10707735 (Version 1)
Quarter: 2015Q1

REPORT INFORMATION
  Report Type: Report from Study
  Country: BR (occurrence: BR)
  Receive Date: 20150113
  Receipt Date: 20150113
  Transmission Date: 20150721
  Serious: Yes (Other)
  Sender: FDA-Public Use
  Company Number: PHHY2015BR003034

PATIENT
  Sex: Female
  Weight: 64 kg

DRUGS (1)
  1. FORASEQ [Suspect]
     Active Substance: BUDESONIDE\FORMOTEROL FUMARATE
     Indication: LUNG DISORDER
     Dosage: UNK, Q12H (IN THE MORNING AND AT NIGHT)
     Route: 065

REACTIONS (1)
  - Drug dependence [Unknown]
